FAERS Safety Report 8968206 (Version 1)
Quarter: 2012Q4

REPORT INFORMATION
  Report Type: 
  Country: US (occurrence: US)
  Receive Date: 20121218
  Receipt Date: 20121218
  Transmission Date: 20130627
  Serious: No
  Sender: FDA-Public Use
  Company Number: US-PFIZER INC-2012318523

PATIENT
  Age: 69 Year
  Sex: Female
  Weight: 104 kg

DRUGS (4)
  1. TIKOSYN [Suspect]
     Indication: ATRIAL FIBRILLATION
     Dosage: 500 mg, 2x/day
     Route: 048
     Dates: start: 201204
  2. NIASPAN [Concomitant]
     Indication: BLOOD PRESSURE ABNORMAL
     Dosage: 1000 mg, daily
     Route: 048
  3. ASPIRIN [Concomitant]
     Dosage: 81 mg, daily
  4. AMLODIPINE [Concomitant]
     Indication: BLOOD PRESSURE ABNORMAL
     Dosage: 10 mg, daily
     Route: 048

REACTIONS (2)
  - Drug hypersensitivity [Recovered/Resolved]
  - Throat tightness [Recovered/Resolved]
